FAERS Safety Report 5507253-7 (Version None)
Quarter: 2007Q4

REPORT INFORMATION
  Report Type: 
  Country: None (occurrence: None)
  Receive Date: 20071105
  Receipt Date: 20071105
  Transmission Date: 20080405
  Serious: Yes (Life-Threatening)
  Sender: FDA-Public Use
  Company Number: None

PATIENT
  Age: 87 Year
  Sex: Female

DRUGS (1)
  1. RISPERDAL [Suspect]
     Dosage: 0.25MG BID PO
     Route: 048
     Dates: start: 20070815, end: 20070824

REACTIONS (1)
  - IDIOPATHIC THROMBOCYTOPENIC PURPURA [None]
